FAERS Safety Report 20426041 (Version 1)
Quarter: 2022Q1

REPORT INFORMATION
  Report Type: Report from Study
  Country: US (occurrence: US)
  Receive Date: 20220204
  Receipt Date: 20220204
  Transmission Date: 20220423
  Serious: No
  Sender: FDA-Public Use
  Company Number: US-EXELIXIS-CABO-21041121

PATIENT
  Sex: Female

DRUGS (3)
  1. CABOMETYX [Suspect]
     Active Substance: CABOZANTINIB S-MALATE
     Indication: Renal cancer
     Dosage: UNK
     Route: 048
  2. CABOMETYX [Suspect]
     Active Substance: CABOZANTINIB S-MALATE
     Dosage: 40 MG, QD (TWO TABLETS OF 20 MG)
     Route: 048
     Dates: end: 20210601
  3. CABOMETYX [Suspect]
     Active Substance: CABOZANTINIB S-MALATE
     Dosage: 40 MG, QD (TWO TABLETS OF 20 MG)
     Route: 048
     Dates: start: 20210603

REACTIONS (4)
  - Oral pain [Unknown]
  - Alopecia [Unknown]
  - Taste disorder [Unknown]
  - Blood pressure diastolic increased [Unknown]
